FAERS Safety Report 10440518 (Version 2)
Quarter: 2014Q3

REPORT INFORMATION
  Report Type: Spontaneous
  Country: JP (occurrence: JP)
  Receive Date: 20140909
  Receipt Date: 20140912
  Transmission Date: 20150326
  Serious: Yes (Other)
  Sender: FDA-Public Use
  Company Number: JP-009507513-1409JPN003640

PATIENT
  Age: 49 Year
  Sex: Female

DRUGS (2)
  1. SINGULAIR [Suspect]
     Active Substance: MONTELUKAST SODIUM
     Indication: ASTHMA
     Dosage: 10 MG ONCE A DAY
     Route: 048
     Dates: start: 2010
  2. PULMICORT TURBUHALER [Concomitant]
     Active Substance: BUDESONIDE
     Indication: ASTHMA
     Dosage: DAILY DOSAGE UNKNOWN
     Route: 055
     Dates: start: 2010

REACTIONS (1)
  - Allergic granulomatous angiitis [Unknown]

NARRATIVE: CASE EVENT DATE: 201408
